FAERS Safety Report 20663369 (Version 2)
Quarter: 2022Q3

REPORT INFORMATION
  Report Type: Spontaneous
  Country: CA (occurrence: CA)
  Receive Date: 20220401
  Receipt Date: 20220712
  Transmission Date: 20221027
  Serious: Yes (Other)
  Sender: FDA-Public Use
  Company Number: CA-GLAXOSMITHKLINE-CA2022GSK058264

PATIENT

DRUGS (2)
  1. ZANTAC [Suspect]
     Active Substance: RANITIDINE HYDROCHLORIDE
     Indication: Dyspepsia
     Dosage: UNK
     Route: 065
     Dates: start: 1999, end: 2019
  2. ZANTAC [Suspect]
     Active Substance: RANITIDINE HYDROCHLORIDE
     Dosage: 150 MG, PRN
     Route: 042
     Dates: start: 20090109, end: 20090122

REACTIONS (10)
  - Colon cancer [Unknown]
  - Large intestine polyp [Unknown]
  - Colorectal adenoma [Unknown]
  - Neoplasm malignant [Unknown]
  - Adenocarcinoma of colon [Unknown]
  - Colon neoplasm [Unknown]
  - Diverticulum intestinal [Unknown]
  - Colon cancer recurrent [Unknown]
  - Polyp [Unknown]
  - Rectal polyp [Unknown]
